FAERS Safety Report 24058197 (Version 1)
Quarter: 2024Q3

REPORT INFORMATION
  Report Type: Spontaneous
  Country: ES (occurrence: ES)
  Receive Date: 20240708
  Receipt Date: 20240708
  Transmission Date: 20241016
  Serious: Yes (Other)
  Sender: JOHNSON AND JOHNSON
  Company Number: None

PATIENT
  Age: 59 Year
  Sex: Male

DRUGS (1)
  1. SIMPONI [Suspect]
     Active Substance: GOLIMUMAB
     Indication: Psoriatic arthropathy
     Dosage: 50 MG CADA 35 DIAS
     Route: 058
     Dates: start: 20190516, end: 20230801

REACTIONS (1)
  - Cutaneous B-cell lymphoma [Recovered/Resolved]

NARRATIVE: CASE EVENT DATE: 20230413
